FAERS Safety Report 24727980 (Version 1)
Quarter: 2024Q4

REPORT INFORMATION
  Report Type: Spontaneous
  Country: US (occurrence: US)
  Receive Date: 20241212
  Receipt Date: 20241212
  Transmission Date: 20250114
  Serious: No
  Sender: BAUSCH AND LOMB
  Company Number: US-BAUSCH-BL-2024-017831

PATIENT
  Age: 80 Year
  Sex: Female

DRUGS (2)
  1. XIFAXAN [Suspect]
     Active Substance: RIFAXIMIN
     Indication: Gastrointestinal microorganism overgrowth
     Route: 065
     Dates: start: 202310
  2. XIFAXAN [Suspect]
     Active Substance: RIFAXIMIN
     Dosage: 2ND COURSE OF XIFAXAN
     Route: 065
     Dates: start: 2024

REACTIONS (3)
  - Gastrointestinal microorganism overgrowth [Unknown]
  - Condition aggravated [Unknown]
  - Off label use [Unknown]

NARRATIVE: CASE EVENT DATE: 20231001
